FAERS Safety Report 24341827 (Version 4)
Quarter: 2025Q1

REPORT INFORMATION
  Report Type: Spontaneous
  Country: US (occurrence: US)
  Receive Date: 20240920
  Receipt Date: 20250317
  Transmission Date: 20250408
  Serious: Yes (Hospitalization, Other)
  Sender: CIPLA
  Company Number: US-CIPLA LTD.-2024US09942

PATIENT

DRUGS (2)
  1. PREGABALIN [Suspect]
     Active Substance: PREGABALIN
     Indication: Dyspnoea
     Route: 065
     Dates: start: 2023, end: 2023
  2. VORICON [Concomitant]
     Indication: Product used for unknown indication
     Route: 065

REACTIONS (29)
  - Eye disorder [Unknown]
  - Seizure [Not Recovered/Not Resolved]
  - Cerebral haemorrhage [Not Recovered/Not Resolved]
  - Cerebrovascular accident [Not Recovered/Not Resolved]
  - Multiple fractures [Not Recovered/Not Resolved]
  - Blindness unilateral [Not Recovered/Not Resolved]
  - Shoulder fracture [Not Recovered/Not Resolved]
  - Drug ineffective [Unknown]
  - Fall [Not Recovered/Not Resolved]
  - Wound [Not Recovered/Not Resolved]
  - Joint injury [Not Recovered/Not Resolved]
  - Adverse drug reaction [Not Recovered/Not Resolved]
  - Dehydration [Not Recovered/Not Resolved]
  - Lip injury [Not Recovered/Not Resolved]
  - Impaired quality of life [Not Recovered/Not Resolved]
  - Head injury [Not Recovered/Not Resolved]
  - Condition aggravated [Unknown]
  - Off label use [Unknown]
  - Tooth loss [Unknown]
  - Alopecia [Not Recovered/Not Resolved]
  - Memory impairment [Not Recovered/Not Resolved]
  - Joint swelling [Not Recovered/Not Resolved]
  - Sleep disorder [Not Recovered/Not Resolved]
  - Arthralgia [Unknown]
  - Swelling face [Not Recovered/Not Resolved]
  - Asthenia [Not Recovered/Not Resolved]
  - Fatigue [Unknown]
  - Coordination abnormal [Unknown]
  - Dry mouth [Unknown]

NARRATIVE: CASE EVENT DATE: 20230101
